FAERS Safety Report 6614487-7 (Version None)
Quarter: 2010Q1

REPORT INFORMATION
  Report Type: 
  Country: None (occurrence: None)
  Receive Date: 20100304
  Receipt Date: 20100304
  Transmission Date: 20100710
  Serious: Yes (Other)
  Sender: FDA-Public Use
  Company Number: None

PATIENT
  Sex: Male
  Weight: 88.6782 kg

DRUGS (2)
  1. ETHAMBUTOL HYDROCHLORIDE [Suspect]
     Indication: ATYPICAL MYCOBACTERIAL INFECTION
     Dosage: 1200MG ONCE DAILY PO
     Route: 048
     Dates: start: 20081106, end: 20100122
  2. ETHAMBUTOL HYDROCHLORIDE [Suspect]
     Indication: HIV INFECTION
     Dosage: 1200MG ONCE DAILY PO
     Route: 048
     Dates: start: 20081106, end: 20100122

REACTIONS (1)
  - OPTIC NEURITIS [None]
